FAERS Safety Report 10638477 (Version 1)
Quarter: 2014Q4

REPORT INFORMATION
  Report Type: Spontaneous
  Country: CA (occurrence: CA)
  Receive Date: 20141208
  Receipt Date: 20141208
  Transmission Date: 20150529
  Serious: Yes (Other)
  Sender: FDA-Public Use
  Company Number: CA-SA-2014SA166198

PATIENT
  Age: 38 Year
  Sex: Female

DRUGS (5)
  1. PERTUZUMAB [Suspect]
     Active Substance: PERTUZUMAB
     Route: 042
  2. TAXOTERE [Suspect]
     Active Substance: DOCETAXEL
     Dosage: DOSAGE FROM: SOLUTION INTRAVENOUS
     Route: 042
  3. PERTUZUMAB [Suspect]
     Active Substance: PERTUZUMAB
     Route: 042
  4. TRASTUZUMAB [Suspect]
     Active Substance: TRASTUZUMAB
     Route: 065
  5. PACLITAXEL. [Concomitant]
     Active Substance: PACLITAXEL
     Dosage: LIQUID INTRAVENOUS

REACTIONS (5)
  - Neuropathy peripheral [Recovered/Resolved]
  - Pruritus [Recovered/Resolved]
  - Muscle tightness [Recovered/Resolved]
  - Back pain [Recovered/Resolved]
  - Musculoskeletal pain [Recovered/Resolved]
